FAERS Safety Report 4425630-2 (Version None)
Quarter: 2004Q3

REPORT INFORMATION
  Report Type: 
  Country: None (occurrence: None)
  Receive Date: 20040716
  Receipt Date: 20040405
  Transmission Date: 20050211
  Serious: Yes (Hospitalization)
  Sender: FDA-Public Use
  Company Number: HQWYE370906APR04

PATIENT
  Age: 48 Year
  Sex: Male
  Weight: 103.06 kg

DRUGS (1)
  1. ADVIL [Suspect]
     Indication: NERVE COMPRESSION
     Dosage: 600 MG THREE TIMES DAILY, ORAL
     Route: 048

REACTIONS (2)
  - OESOPHAGITIS [None]
  - OVERDOSE [None]
